FAERS Safety Report 14328324 (Version 1)
Quarter: 2017Q4

REPORT INFORMATION
  Report Type: Spontaneous
  Country: US (occurrence: US)
  Receive Date: 20171227
  Receipt Date: 20171227
  Transmission Date: 20180321
  Serious: Yes (Other)
  Sender: FDA-Public Use
  Company Number: None

PATIENT
  Age: 27 Year
  Sex: Female
  Weight: 74.25 kg

DRUGS (7)
  1. IRON [Concomitant]
     Active Substance: IRON
  2. VITAMIN B12 [Concomitant]
     Active Substance: CYANOCOBALAMIN
  3. NORGESTIMATE AND ETHINYL ESTRADIOL TABLESTS USP [Suspect]
     Active Substance: ETHINYL ESTRADIOL\NORGESTIMATE
     Indication: ACNE
     Dosage: ?          QUANTITY:28 TABLET(S);?
     Route: 048
  4. LIALDA [Concomitant]
     Active Substance: MESALAMINE
  5. MULTI-VITAMIN [Concomitant]
     Active Substance: .ALPHA.-TOCOPHEROL ACETATE, DL-\ASCORBIC ACID\CYANOCOBALAMIN\FLUORIDE ION\FOLIC ACID\NIACIN\PYRIDOXINE\RIBOFLAVIN\THIAMINE\VITAMIN A\VITAMIN D
  6. VITAMIN D [Concomitant]
     Active Substance: CHOLECALCIFEROL
  7. NORGESTIMATE AND ETHINYL ESTRADIOL TABLESTS USP [Suspect]
     Active Substance: ETHINYL ESTRADIOL\NORGESTIMATE
     Indication: CONTRACEPTION
     Dosage: ?          QUANTITY:28 TABLET(S);?
     Route: 048

REACTIONS (5)
  - Mood swings [None]
  - Product substitution issue [None]
  - Weight increased [None]
  - Abdominal pain [None]
  - Headache [None]

NARRATIVE: CASE EVENT DATE: 20171201
